FAERS Safety Report 12471263 (Version 1)
Quarter: 2016Q2

REPORT INFORMATION
  Report Type: Report from Study
  Country: US (occurrence: US)
  Receive Date: 20160616
  Receipt Date: 20160616
  Transmission Date: 20160815
  Serious: No
  Sender: FDA-Public Use
  Company Number: US-AMGEN-USASL2016076293

PATIENT
  Age: 89 Year
  Sex: Female

DRUGS (1)
  1. ENBREL [Suspect]
     Active Substance: ETANERCEPT
     Indication: PRODUCT USED FOR UNKNOWN INDICATION
     Dosage: UNK
     Route: 065

REACTIONS (11)
  - Pain in extremity [Unknown]
  - Feeling abnormal [Unknown]
  - Fatigue [Unknown]
  - Inflammation [Unknown]
  - Neuropathy peripheral [Unknown]
  - Dry skin [Unknown]
  - Musculoskeletal stiffness [Unknown]
  - Head discomfort [Unknown]
  - Local swelling [Unknown]
  - Mobility decreased [Unknown]
  - Alopecia [Unknown]
